FAERS Safety Report 12860532 (Version 1)
Quarter: 2016Q4

REPORT INFORMATION
  Report Type: Spontaneous
  Country: GB (occurrence: GB)
  Receive Date: 20161019
  Receipt Date: 20161019
  Transmission Date: 20170207
  Serious: Yes (Other)
  Sender: FDA-Public Use
  Company Number: GB-PFIZER INC-2016481540

PATIENT
  Sex: Male

DRUGS (2)
  1. SODIUM CHLORIDE. [Suspect]
     Active Substance: SODIUM CHLORIDE
     Dosage: UNK
     Route: 065
     Dates: start: 20160921
  2. NAVELBINE [Suspect]
     Active Substance: VINORELBINE TARTRATE
     Indication: CHEMOTHERAPY
     Dosage: 49 MG, UNK
     Route: 065
     Dates: start: 20160921

REACTIONS (1)
  - Thrombophlebitis [Unknown]

NARRATIVE: CASE EVENT DATE: 20160927
